FAERS Safety Report 7595960-4 (Version None)
Quarter: 2011Q3

REPORT INFORMATION
  Report Type: 
  Country: None (occurrence: None)
  Receive Date: 20110707
  Receipt Date: 20110627
  Transmission Date: 20111222
  Serious: Yes (Life-Threatening, Hospitalization)
  Sender: FDA-Public Use
  Company Number: PHHY2011US45506

PATIENT
  Sex: Male

DRUGS (2)
  1. EXJADE [Suspect]
     Indication: HAEMOCHROMATOSIS
     Dosage: 500 MG, QD
     Route: 048
     Dates: start: 20110526
  2. BLOOD AND RELATED PRODUCTS [Concomitant]
     Dosage: UNK

REACTIONS (8)
  - HAEMATOCHEZIA [None]
  - IRRITABILITY [None]
  - DIARRHOEA [None]
  - POLLAKIURIA [None]
  - CONFUSIONAL STATE [None]
  - GASTROINTESTINAL HAEMORRHAGE [None]
  - RECTAL HAEMORRHAGE [None]
  - AGITATION [None]
